FAERS Safety Report 5779465-9 (Version None)
Quarter: 2008Q2

REPORT INFORMATION
  Report Type: 
  Country: None (occurrence: None)
  Receive Date: 20080619
  Receipt Date: 20080609
  Transmission Date: 20081010
  Serious: Yes (Hospitalization, Other)
  Sender: FDA-Public Use
  Company Number: US-PFIZER INC-2006119459

PATIENT
  Sex: Female
  Weight: 74.8 kg

DRUGS (7)
  1. CELEBREX [Suspect]
     Indication: ARTHRITIS
     Route: 048
  2. BEXTRA [Suspect]
     Indication: ARTHRITIS
     Route: 048
     Dates: start: 20030305, end: 20030404
  3. VIOXX [Suspect]
     Indication: NECK PAIN
     Route: 048
  4. VIOXX [Suspect]
     Indication: BACK PAIN
  5. TYLENOL [Concomitant]
  6. ULTRAM [Concomitant]
  7. ESTRADERM [Concomitant]
     Indication: HYSTERECTOMY

REACTIONS (6)
  - DIARRHOEA [None]
  - DUODENAL ULCER [None]
  - GASTRIC ULCER HAEMORRHAGE [None]
  - HEART INJURY [None]
  - STEVENS-JOHNSON SYNDROME [None]
  - TRANSIENT ISCHAEMIC ATTACK [None]
